FAERS Safety Report 20121456 (Version 2)
Quarter: 2022Q1

REPORT INFORMATION
  Report Type: Spontaneous
  Country: US (occurrence: US)
  Receive Date: 20211128
  Receipt Date: 20220106
  Transmission Date: 20220423
  Serious: No
  Sender: FDA-Public Use
  Company Number: US-JNJFOC-20211116792

PATIENT
  Age: 8 Decade
  Sex: Male

DRUGS (3)
  1. STELARA [Suspect]
     Active Substance: USTEKINUMAB
     Indication: Crohn^s disease
     Route: 058
  2. STELARA [Suspect]
     Active Substance: USTEKINUMAB
     Route: 042
  3. AVODART [Concomitant]
     Active Substance: DUTASTERIDE
     Indication: Prostatomegaly

REACTIONS (6)
  - Diarrhoea [Recovered/Resolved]
  - Anxiety [Recovered/Resolved]
  - Weight decreased [Recovering/Resolving]
  - Headache [Recovered/Resolved]
  - Inappropriate schedule of product administration [Unknown]
  - Off label use [Unknown]

NARRATIVE: CASE EVENT DATE: 20200101
